FAERS Safety Report 11865859 (Version 1)
Quarter: 2015Q4

REPORT INFORMATION
  Report Type: Spontaneous
  Country: FR (occurrence: FR)
  Receive Date: 20151223
  Receipt Date: 20151223
  Transmission Date: 20160305
  Serious: Yes (Hospitalization, Other)
  Sender: FDA-Public Use
  Company Number: FR-GILEAD-2015-0188916

PATIENT
  Age: 54 Year
  Sex: Female

DRUGS (11)
  1. DEPAKOTE [Concomitant]
     Active Substance: DIVALPROEX SODIUM
  2. IMOVANE [Concomitant]
     Active Substance: ZOPICLONE
  3. LEXOMIL [Concomitant]
     Active Substance: BROMAZEPAM
  4. LEVOTHYROX [Concomitant]
     Active Substance: LEVOTHYROXINE
     Indication: HYPOTHYROIDISM
  5. LAROXYL [Concomitant]
     Active Substance: AMITRIPTYLINE
  6. HEPT-A-MYL [Concomitant]
     Active Substance: HEPTAMINOL HYDROCHLORIDE
     Indication: HYPOTENSION
  7. SOVALDI [Suspect]
     Active Substance: SOFOSBUVIR
     Indication: HEPATITIS C
     Dosage: UNK
     Route: 065
     Dates: start: 201510
  8. RISPERDAL [Concomitant]
     Active Substance: RISPERIDONE
  9. MAXALT [Concomitant]
     Active Substance: RIZATRIPTAN BENZOATE
     Indication: HEADACHE
  10. STILNOX [Concomitant]
     Active Substance: ZOLPIDEM TARTRATE
  11. DAKLINZA [Concomitant]
     Active Substance: DACLATASVIR
     Indication: HEPATITIS C
     Dosage: UNK
     Dates: start: 201510

REACTIONS (2)
  - Loss of consciousness [Unknown]
  - Discomfort [Unknown]

NARRATIVE: CASE EVENT DATE: 201512
